FAERS Safety Report 5279325-6 (Version None)
Quarter: 2007Q1

REPORT INFORMATION
  Report Type: 
  Country: None (occurrence: None)
  Receive Date: 20070328
  Receipt Date: 20060405
  Transmission Date: 20070707
  Serious: No
  Sender: FDA-Public Use
  Company Number: US-AMGEN-US164284

PATIENT
  Sex: Male

DRUGS (3)
  1. NEULASTA [Suspect]
     Indication: CHEMOTHERAPY
     Route: 065
     Dates: start: 20060105
  2. TAXOTERE [Concomitant]
     Route: 065
     Dates: start: 20060104, end: 20060104
  3. PREDNISONE [Concomitant]
     Route: 065

REACTIONS (4)
  - ABDOMINAL PAIN [None]
  - BACK PAIN [None]
  - MUSCLE SPASMS [None]
  - PAIN IN EXTREMITY [None]
